FAERS Safety Report 7279638-2 (Version None)
Quarter: 2011Q1

REPORT INFORMATION
  Report Type: 
  Country: None (occurrence: None)
  Receive Date: 20110203
  Receipt Date: 20110203
  Transmission Date: 20110831
  Serious: Yes (Hospitalization)
  Sender: FDA-Public Use
  Company Number: None

PATIENT
  Sex: Female
  Weight: 38.1 kg

DRUGS (4)
  1. CYTARABINE [Suspect]
     Dosage: 368 MG
  2. MERCAPTOPURINE [Suspect]
     Dosage: 600 MG
  3. METHOTREXATE [Suspect]
     Dosage: 30 MG
  4. CYCLOPHOSPHAMIDE [Suspect]
     Dosage: 1230 MG

REACTIONS (4)
  - CONVULSION [None]
  - VISUAL ACUITY REDUCED [None]
  - CEREBRAL ATROPHY [None]
  - LEUKOENCEPHALOPATHY [None]
